FAERS Safety Report 5691015-4 (Version None)
Quarter: 2008Q2

REPORT INFORMATION
  Report Type: 
  Country: None (occurrence: None)
  Receive Date: 20080401
  Receipt Date: 20080320
  Transmission Date: 20081010
  Serious: Yes (Hospitalization)
  Sender: FDA-Public Use
  Company Number: US-PFIZER INC-2008026216

PATIENT
  Age: 19 Year
  Sex: Female

DRUGS (2)
  1. LYRICA [Suspect]
  2. CYMBALTA [Concomitant]

REACTIONS (4)
  - BLOOD POTASSIUM DECREASED [None]
  - CLUSTER HEADACHE [None]
  - NAUSEA [None]
  - VOMITING [None]
